FAERS Safety Report 5614694-6 (Version None)
Quarter: 2008Q1

REPORT INFORMATION
  Report Type: 
  Country: None (occurrence: None)
  Receive Date: 20080131
  Receipt Date: 20080117
  Transmission Date: 20080703
  Serious: Yes (Other)
  Sender: FDA-Public Use
  Company Number: 002#1#2008-00020

PATIENT
  Age: 33 Year
  Sex: Female

DRUGS (9)
  1. NEUPRO-4MG/24H (ROTIGOTINE) [Suspect]
     Indication: DEPRESSION
     Dosage: 4MG/24H, 1 IN 1 D, TRANSDERMAL; 4MG/24H, 1 IN 1 D, TRANSDERMAL
     Route: 062
     Dates: start: 20070115, end: 20070116
  2. NEUPRO-4MG/24H (ROTIGOTINE) [Suspect]
     Indication: RESTLESS LEGS SYNDROME
     Dosage: 4MG/24H, 1 IN 1 D, TRANSDERMAL; 4MG/24H, 1 IN 1 D, TRANSDERMAL
     Route: 062
     Dates: start: 20070115, end: 20070116
  3. NEUPRO-4MG/24H (ROTIGOTINE) [Suspect]
     Indication: DEPRESSION
     Dosage: 4MG/24H, 1 IN 1 D, TRANSDERMAL; 4MG/24H, 1 IN 1 D, TRANSDERMAL
     Route: 062
     Dates: start: 20071217, end: 20071231
  4. NEUPRO-4MG/24H (ROTIGOTINE) [Suspect]
     Indication: RESTLESS LEGS SYNDROME
     Dosage: 4MG/24H, 1 IN 1 D, TRANSDERMAL; 4MG/24H, 1 IN 1 D, TRANSDERMAL
     Route: 062
     Dates: start: 20071217, end: 20071231
  5. AMBIEN CR [Concomitant]
  6. SEROQUEL [Concomitant]
  7. CLONAZEPAM [Concomitant]
  8. REQUIP [Concomitant]
  9. MIRAPEX [Concomitant]

REACTIONS (3)
  - DRUG INEFFECTIVE [None]
  - PHARMACEUTICAL PRODUCT COMPLAINT [None]
  - SUICIDAL IDEATION [None]
